FAERS Safety Report 8941565 (Version 1)
Quarter: 2012Q4

REPORT INFORMATION
  Report Type: 
  Country: US (occurrence: US)
  Receive Date: 20121203
  Receipt Date: 20121203
  Transmission Date: 20130627
  Serious: Yes (Hospitalization)
  Sender: FDA-Public Use
  Company Number: US-BAYER-2012-125662

PATIENT
  Age: 42 Year
  Sex: Female
  Weight: 75 kg

DRUGS (4)
  1. YAZ [Suspect]
     Indication: CONTRACEPTION
     Dosage: UNK
     Dates: end: 20080704
  2. VICODIN [Concomitant]
  3. FLOMAX [TAMSULOSIN HYDROCHLORIDE] [Concomitant]
  4. MOXIFLOXACIN [Concomitant]

REACTIONS (1)
  - Pulmonary embolism [None]
